FAERS Safety Report 22394908 (Version 1)
Quarter: 2023Q2

REPORT INFORMATION
  Report Type: Spontaneous
  Country: US (occurrence: US)
  Receive Date: 20230601
  Receipt Date: 20230601
  Transmission Date: 20230721
  Serious: Yes (Other)
  Sender: FDA-Public Use
  Company Number: US-APIL-2312080US

PATIENT
  Sex: Male

DRUGS (1)
  1. VRAYLAR [Suspect]
     Active Substance: CARIPRAZINE
     Indication: Product used for unknown indication

REACTIONS (9)
  - Suicidal ideation [Unknown]
  - Paralysis [Unknown]
  - Dyspnoea [Unknown]
  - Choking sensation [Unknown]
  - Heart rate irregular [Unknown]
  - Blood glucose abnormal [Unknown]
  - Tachyphrenia [Unknown]
  - Tardive dyskinesia [Unknown]
  - Heart rate increased [Unknown]
